FAERS Safety Report 14368512 (Version 5)
Quarter: 2018Q2

REPORT INFORMATION
  Report Type: Report from Study
  Country: US (occurrence: US)
  Receive Date: 20180109
  Receipt Date: 20180404
  Transmission Date: 20180711
  Serious: Yes (Hospitalization, Other)
  Sender: FDA-Public Use
  Company Number: US-GILEAD-2017-0311206

PATIENT
  Age: 12 Year
  Sex: Male
  Weight: 40 kg

DRUGS (2)
  1. ADCIRCA [Concomitant]
     Active Substance: TADALAFIL
  2. AMBRISENTAN [Suspect]
     Active Substance: AMBRISENTAN
     Indication: PRODUCT USED FOR UNKNOWN INDICATION
     Dosage: 10 MG, QD
     Route: 065
     Dates: start: 20150720

REACTIONS (4)
  - Influenza [Not Recovered/Not Resolved]
  - Off label use [Recovered/Resolved]
  - Heart and lung transplant [Recovered/Resolved]
  - Tooth socket haemorrhage [Recovered/Resolved]

NARRATIVE: CASE EVENT DATE: 20150720
